FAERS Safety Report 16423963 (Version 1)
Quarter: 2019Q2

REPORT INFORMATION
  Report Type: Spontaneous
  Country: CH (occurrence: CH)
  Receive Date: 20190613
  Receipt Date: 20190613
  Transmission Date: 20190711
  Serious: Yes (Other)
  Sender: FDA-Public Use
  Company Number: CH-ROCHE-2334232

PATIENT
  Sex: Female
  Weight: 73 kg

DRUGS (1)
  1. MABTHERA [Suspect]
     Active Substance: RITUXIMAB
     Indication: IMMUNODEFICIENCY COMMON VARIABLE
     Dosage: 4X/375 MG X M2
     Route: 042
     Dates: start: 2008

REACTIONS (3)
  - Off label use [Unknown]
  - Intentional product use issue [Unknown]
  - Disease progression [Not Recovered/Not Resolved]
